FAERS Safety Report 25631896 (Version 2)
Quarter: 2025Q4

REPORT INFORMATION
  Report Type: Spontaneous
  Country: US (occurrence: US)
  Receive Date: 20250801
  Receipt Date: 20251003
  Transmission Date: 20260117
  Serious: No
  Sender: GLAXOSMITHKLINE
  Company Number: US-GSK-US2025AMR085472

PATIENT
  Sex: Female

DRUGS (1)
  1. NUCALA [Suspect]
     Active Substance: MEPOLIZUMAB
     Indication: Asthma
     Dosage: 100 MG, MO
     Dates: start: 202105

REACTIONS (8)
  - Fatigue [Not Recovered/Not Resolved]
  - Exposure via skin contact [Unknown]
  - Back pain [Not Recovered/Not Resolved]
  - Wrong technique in device usage process [Unknown]
  - Contusion [Not Recovered/Not Resolved]
  - Drug ineffective [Unknown]
  - Accidental exposure to product [Unknown]
  - Product dose omission issue [Unknown]
